FAERS Safety Report 9352775 (Version 1)
Quarter: 2013Q2

REPORT INFORMATION
  Report Type: Spontaneous
  Country: US (occurrence: None)
  Receive Date: 20130614
  Receipt Date: 20130614
  Transmission Date: 20140414
  Serious: Yes (Other)
  Sender: FDA-Public Use
  Company Number: None

PATIENT
  Age: 86 Year
  Sex: Male

DRUGS (12)
  1. ZYTIGA 250?MG JANSSEN [Suspect]
     Indication: PROSTATE CANCER
     Route: 048
     Dates: end: 02030510
  2. PREDNISONE [Suspect]
     Route: 048
     Dates: end: 20130513
  3. SIMVASTATIN [Concomitant]
  4. METOPROLOL [Concomitant]
  5. BUMETANIDE [Concomitant]
  6. ASPIRIN [Concomitant]
  7. CALCIUM [Concomitant]
  8. XGEVA [Concomitant]
  9. RIVASTIGMINE [Concomitant]
  10. ZOMETA [Concomitant]
  11. PROCRIT [Concomitant]
  12. LUPRON [Concomitant]

REACTIONS (5)
  - Nausea [None]
  - Weight decreased [None]
  - Dysgeusia [None]
  - Fatigue [None]
  - Decreased appetite [None]
